FAERS Safety Report 11473306 (Version 1)
Quarter: 2015Q3

REPORT INFORMATION
  Report Type: Spontaneous
  Country: US (occurrence: None)
  Receive Date: 20150908
  Receipt Date: 20150908
  Transmission Date: 20151125
  Serious: No
  Sender: FDA-Public Use
  Company Number: None

PATIENT
  Age: 51 Year
  Sex: Female

DRUGS (10)
  1. VITAMIN D [Concomitant]
     Active Substance: CHOLECALCIFEROL
  2. CAPECITABINE 150MG TEVA [Suspect]
     Active Substance: CAPECITABINE
     Indication: NEOPLASM MALIGNANT
     Dosage: 300MG BID 2 WEEKS PO
     Route: 048
     Dates: start: 20150801
  3. LORAZEPAM. [Concomitant]
     Active Substance: LORAZEPAM
  4. COMPAMON [Concomitant]
  5. NAMENDA [Concomitant]
     Active Substance: MEMANTINE HYDROCHLORIDE
  6. OMEPRAZOLE. [Concomitant]
     Active Substance: OMEPRAZOLE
  7. CAPECITABINE 500MG TEVA [Suspect]
     Active Substance: CAPECITABINE
     Indication: NEOPLASM MALIGNANT
     Dosage: 1000 MG BID 2 WEEKS PO
     Route: 048
     Dates: start: 20150423
  8. GRANIX [Concomitant]
     Active Substance: TBO-FILGRASTIM
  9. LOVENOX [Concomitant]
     Active Substance: ENOXAPARIN SODIUM
  10. HERCEPTIN [Concomitant]
     Active Substance: TRASTUZUMAB

REACTIONS (1)
  - Nausea [None]
